FAERS Safety Report 7270764-0 (Version None)
Quarter: 2011Q1

REPORT INFORMATION
  Report Type: 
  Country: None (occurrence: None)
  Receive Date: 20110202
  Receipt Date: 20110120
  Transmission Date: 20110831
  Serious: Yes (Life-Threatening, Other)
  Sender: FDA-Public Use
  Company Number: US-MYLANLABS-2011S1001412

PATIENT
  Age: 48 Year
  Sex: Female

DRUGS (9)
  1. ADALAT [Concomitant]
     Indication: BLOOD PRESSURE
     Route: 048
  2. LEVOTHYROXINE [Concomitant]
     Indication: HYPOTHYROIDISM
     Route: 048
  3. GLIMEPIRIDE [Suspect]
     Indication: DIABETES MELLITUS
     Route: 048
     Dates: start: 20110113, end: 20110113
  4. INDERAL [Concomitant]
     Indication: BLOOD PRESSURE
     Route: 048
  5. DIAZEPAM [Concomitant]
     Route: 048
  6. HYZAAR [Concomitant]
     Indication: BLOOD PRESSURE
     Dosage: 100/25MG
     Route: 048
  7. INSULIN [Concomitant]
  8. SINGULAIR [Concomitant]
  9. PREVACID [Concomitant]
     Route: 048

REACTIONS (1)
  - ANAPHYLACTIC REACTION [None]
